FAERS Safety Report 8289619-8 (Version None)
Quarter: 2012Q2

REPORT INFORMATION
  Report Type: 
  Country: None (occurrence: None)
  Receive Date: 20120417
  Receipt Date: 20120410
  Transmission Date: 20120825
  Serious: Yes (Hospitalization)
  Sender: FDA-Public Use
  Company Number: MX-B.I. PHARMACEUTICALS,INC./RIDGEFIELD-2012-MX-00119MX

PATIENT
  Age: 37 Year
  Sex: Male
  Weight: 102 kg

DRUGS (4)
  1. ARCOXIA [Concomitant]
     Indication: PAIN
     Dosage: 120 MG
     Route: 048
     Dates: start: 20111201
  2. ACETAMINOPHEN W/ CODEINE [Concomitant]
     Indication: PAIN
     Dosage: 2250 MG
     Route: 048
     Dates: start: 20111201
  3. KEFLEX [Concomitant]
     Indication: INFECTION PROPHYLAXIS
     Dosage: 3 G
     Route: 048
     Dates: start: 20111201
  4. DABIGATRAN ETEXILATE [Suspect]
     Indication: THROMBOSIS PROPHYLAXIS
     Dosage: 150 MG
     Route: 048
     Dates: start: 20111201, end: 20111201

REACTIONS (1)
  - PULMONARY EMBOLISM [None]
